FAERS Safety Report 11468312 (Version 1)
Quarter: 2015Q3

REPORT INFORMATION
  Report Type: Spontaneous
  Country: US (occurrence: None)
  Receive Date: 20150904
  Receipt Date: 20150904
  Transmission Date: 20151125
  Serious: Yes (Other)
  Sender: FDA-Public Use
  Company Number: None

PATIENT
  Age: 28 Year
  Sex: Female
  Weight: 54.43 kg

DRUGS (1)
  1. SUBOXONE [Suspect]
     Active Substance: BUPRENORPHINE HYDROCHLORIDE\NALOXONE HYDROCHLORIDE
     Indication: PROPHYLAXIS
     Dosage: 2 STRIPS DAY/TAKEN UNDER THE TONGUE

REACTIONS (2)
  - Stomatitis [None]
  - Glossodynia [None]

NARRATIVE: CASE EVENT DATE: 20150902
